FAERS Safety Report 4959990-0 (Version None)
Quarter: 2006Q1

REPORT INFORMATION
  Report Type: 
  Country: None (occurrence: None)
  Receive Date: 20060331
  Receipt Date: 20060202
  Transmission Date: 20060701
  Serious: Yes (Hospitalization)
  Sender: FDA-Public Use
  Company Number: US-MERCK-0602USA01662

PATIENT
  Age: 32 Year
  Sex: Male
  Weight: 90 kg

DRUGS (1)
  1. VIOXX [Suspect]
     Indication: PELVIC FRACTURE
     Route: 048
     Dates: start: 20010129, end: 20010227

REACTIONS (4)
  - BRADYCARDIA [None]
  - CARDIAC DISORDER [None]
  - HYPERTENSION [None]
  - LUNG DISORDER [None]
